FAERS Safety Report 10294292 (Version 1)
Quarter: 2014Q3

REPORT INFORMATION
  Report Type: Spontaneous
  Country: US (occurrence: US)
  Receive Date: 20140710
  Receipt Date: 20140710
  Transmission Date: 20150326
  Serious: Yes (Hospitalization)
  Sender: FDA-Public Use
  Company Number: US-UCBSA-2014004628

PATIENT
  Age: 81 Year
  Sex: Female
  Weight: 63.63 kg

DRUGS (5)
  1. POLYETHYLENE GLYCOL 3350 PRESCRIPTION [Suspect]
     Active Substance: POLYETHYLENE GLYCOL 3350
     Indication: CONSTIPATION
     Dosage: 17 GMS DAILY FOR 3 WEEKS, THEN TWICE DAILY, THEN ONCE DAILY WITH MEALS/POWDER FORM/ORAL OR BY MOUTH
     Route: 048
     Dates: start: 201406, end: 2014
  2. ASPIRIN. [Concomitant]
     Active Substance: ASPIRIN
     Indication: THROMBOSIS
     Dosage: 325 MG, ONCE DAILY (QD)
     Route: 048
     Dates: start: 2011
  3. MICARDIS [Concomitant]
     Active Substance: TELMISARTAN
     Indication: HYPERTENSION
     Dosage: 80 MG, ONCE DAILY (QD);8 YEARS AGO
  4. METOPROLOL XL SANDOZ [Concomitant]
     Indication: HYPERTENSION
     Dosage: 6-8 YEARS AGO (2008+);50 MG, ONCE DAILY (QD)
     Route: 048
  5. NATEGLINIDE. [Concomitant]
     Active Substance: NATEGLINIDE
     Indication: DIABETES MELLITUS
     Dosage: 60 OR 120 MG  (CANNOT REMEMBER WHICH DOSE) 3 TIMES/DAY

REACTIONS (5)
  - Drug administration error [Unknown]
  - Abdominal distension [Recovering/Resolving]
  - Nausea [Recovering/Resolving]
  - Abdominal pain [Recovered/Resolved]
  - Vomiting [Recovered/Resolved]

NARRATIVE: CASE EVENT DATE: 201406
